FAERS Safety Report 4743651-7 (Version None)
Quarter: 2005Q3

REPORT INFORMATION
  Report Type: 
  Country: None (occurrence: None)
  Receive Date: 20050809
  Receipt Date: 20050801
  Transmission Date: 20060218
  Serious: No
  Sender: FDA-Public Use
  Company Number: 11953

PATIENT
  Age: 10 Year
  Sex: Female

DRUGS (6)
  1. VINCRISTINE [Suspect]
     Indication: MALIGNANT SOFT TISSUE NEOPLASM
     Dosage: 1.5 MG/M2 PER_CYCLE
  2. ETOPOSIDE [Suspect]
     Indication: MALIGNANT SOFT TISSUE NEOPLASM
     Dosage: 150 MG/M2 PER_CYCLE
  3. EPIRUBICIN [Suspect]
     Indication: MALIGNANT SOFT TISSUE NEOPLASM
     Dosage: 150 MG/M2 PER_CYCLE
  4. CARBOPLATIN [Suspect]
     Indication: MALIGNANT SOFT TISSUE NEOPLASM
     Dosage: 500 MG/M2 PER_CYCLE
  5. IFOSFAMIDE [Suspect]
     Indication: MALIGNANT SOFT TISSUE NEOPLASM
     Dosage: 3 G/M2 PER_CYCLE
  6. DACTINOMYCIN [Suspect]
     Indication: MALIGNANT SOFT TISSUE NEOPLASM
     Dosage: 1.5 MG/M2 PER_CYCLE

REACTIONS (6)
  - ANOREXIA [None]
  - GROWTH RETARDATION [None]
  - HYPOTHYROIDISM [None]
  - PLATELET COUNT DECREASED [None]
  - VOMITING [None]
  - WHITE BLOOD CELL COUNT DECREASED [None]
